FAERS Safety Report 7226433-6 (Version None)
Quarter: 2010Q4

REPORT INFORMATION
  Report Type: 
  Country: None (occurrence: None)
  Receive Date: 20101126
  Receipt Date: 20100908
  Transmission Date: 20110411
  Serious: No
  Sender: FDA-Public Use
  Company Number: 314551

PATIENT
  Age: 66 Year
  Sex: Female

DRUGS (2)
  1. VICTOZA [Suspect]
     Indication: TYPE 2 DIABETES MELLITUS
     Dosage: 0.6 MG, QD, SUBCUTANEOUS
     Route: 058
     Dates: start: 20100901
  2. LORAZEPAM [Concomitant]

REACTIONS (2)
  - ABDOMINAL DISCOMFORT [None]
  - ASTHENIA [None]
